FAERS Safety Report 14985573 (Version 3)
Quarter: 2018Q2

REPORT INFORMATION
  Report Type: Spontaneous
  Country: JP (occurrence: JP)
  Receive Date: 20180607
  Receipt Date: 20180626
  Transmission Date: 20180711
  Serious: Yes (Other)
  Sender: FDA-Public Use
  Company Number: PHJP2018JP011872

PATIENT
  Age: 66 Year
  Sex: Female

DRUGS (3)
  1. AZORGA COMBINATION OPHTHALMIC SUSPENSION [Suspect]
     Active Substance: BRINZOLAMIDE\TIMOLOL MALEATE
     Indication: GLAUCOMA
     Dosage: UNK ML, UNK
     Route: 047
     Dates: start: 20140514, end: 20140701
  2. KARY UNI [Concomitant]
     Active Substance: PIRENOXINE
     Indication: CATARACT
     Dosage: UNK ML, 3 OR 4 TIMES A DAY
     Route: 047
     Dates: start: 20140514, end: 20140701
  3. HYALEIN [Concomitant]
     Active Substance: HYALURONATE SODIUM
     Indication: DRY EYE
     Dosage: UNK ML, 3 OR 4 TIMES A DAY
     Route: 047
     Dates: start: 20140514, end: 20140701

REACTIONS (4)
  - Corneal erosion [Recovered/Resolved]
  - Foreign body sensation in eyes [Unknown]
  - Eye pain [Unknown]
  - Corneal epithelium defect [Unknown]

NARRATIVE: CASE EVENT DATE: 20140701
